FAERS Safety Report 15552748 (Version 1)
Quarter: 2018Q4

REPORT INFORMATION
  Report Type: Report from Study
  Country: GB (occurrence: GB)
  Receive Date: 20181025
  Receipt Date: 20181025
  Transmission Date: 20190205
  Serious: Yes (Hospitalization)
  Sender: FDA-Public Use
  Company Number: GB-ELI_LILLY_AND_COMPANY-GB201810000954

PATIENT
  Age: 78 Year
  Sex: Female

DRUGS (1)
  1. TERIPARATIDE [Suspect]
     Active Substance: TERIPARATIDE
     Indication: OSTEOPOROSIS
     Dosage: 20 UG, DAILY
     Route: 058
     Dates: start: 20180918

REACTIONS (6)
  - Gastric haemorrhage [Unknown]
  - Influenza like illness [Unknown]
  - Pain [Unknown]
  - Faeces discoloured [Unknown]
  - Dyspepsia [Unknown]
  - Anaemia [Unknown]

NARRATIVE: CASE EVENT DATE: 20180918
